FAERS Safety Report 6370075-1 (Version None)
Quarter: 2009Q3

REPORT INFORMATION
  Report Type: 
  Country: None (occurrence: None)
  Receive Date: 20090923
  Receipt Date: 20071025
  Transmission Date: 20100115
  Serious: No
  Sender: FDA-Public Use
  Company Number: US-ASTRAZENECA-2006UW22096

PATIENT
  Age: 45 Year
  Sex: Male
  Weight: 122.5 kg

DRUGS (26)
  1. SEROQUEL [Suspect]
     Indication: SCHIZOPHRENIA
     Dosage: 300MG TO 600 MG, AT NIGHT
     Route: 048
     Dates: start: 19990603
  2. SEROQUEL [Suspect]
     Indication: POST-TRAUMATIC STRESS DISORDER
     Dosage: 300MG TO 600 MG, AT NIGHT
     Route: 048
     Dates: start: 19990603
  3. SEROQUEL [Suspect]
     Route: 048
     Dates: start: 20010101
  4. SEROQUEL [Suspect]
     Route: 048
     Dates: start: 20010101
  5. ABILIFY [Concomitant]
     Route: 048
     Dates: start: 20050619
  6. GEODON [Concomitant]
  7. HALDOL [Concomitant]
  8. NAVANE [Concomitant]
  9. THORAZINE [Concomitant]
  10. TRILAFON/TRIAVIL [Concomitant]
  11. RISPERDAL [Concomitant]
  12. ZYPREXA/SYMBYAX [Concomitant]
  13. MECLIZINE [Concomitant]
     Route: 048
     Dates: start: 20051209
  14. PRILOSEC [Concomitant]
     Route: 048
     Dates: start: 20060202
  15. NAPROXEN [Concomitant]
     Route: 048
     Dates: start: 20031202
  16. PROPRANOLOL [Concomitant]
     Route: 048
     Dates: start: 20031002
  17. LEXAPRO [Concomitant]
     Route: 048
     Dates: start: 20031002
  18. DARVOCET [Concomitant]
     Route: 048
     Dates: start: 20031002
  19. CLONAZEPAM [Concomitant]
     Route: 048
     Dates: start: 20040217
  20. DEPAKOTE [Concomitant]
     Route: 048
     Dates: start: 20020809
  21. METHOCARBAMOL [Concomitant]
     Route: 048
     Dates: start: 20031002
  22. KEFLEX [Concomitant]
     Route: 048
     Dates: start: 20031022
  23. ASPIRIN [Concomitant]
     Route: 048
     Dates: start: 20060414
  24. GLUCOPHAGE [Concomitant]
     Route: 048
     Dates: start: 20060414
  25. WELLBUTRIN XL [Concomitant]
     Route: 048
     Dates: start: 20070227
  26. LIPITOR [Concomitant]
     Route: 048
     Dates: start: 20070227

REACTIONS (3)
  - DIABETES MELLITUS [None]
  - INTERVERTEBRAL DISC PROTRUSION [None]
  - TYPE 2 DIABETES MELLITUS [None]
